FAERS Safety Report 20417119 (Version 8)
Quarter: 2022Q3

REPORT INFORMATION
  Report Type: Report from Study
  Country: US (occurrence: US)
  Receive Date: 20220202
  Receipt Date: 20220916
  Transmission Date: 20221027
  Serious: Yes (Other)
  Sender: FDA-Public Use
  Company Number: US-NOVARTISTESTPH-NVSC2022US022299

PATIENT
  Sex: Female

DRUGS (2)
  1. ENTRESTO [Suspect]
     Active Substance: SACUBITRIL\VALSARTAN
     Indication: Product used for unknown indication
     Dosage: UNK
     Route: 065
  2. MUCINEX [Concomitant]
     Active Substance: GUAIFENESIN
     Indication: Product used for unknown indication
     Dosage: UNK
     Route: 065

REACTIONS (20)
  - Cataract [Unknown]
  - Choking [Unknown]
  - Choking sensation [Unknown]
  - COVID-19 [Unknown]
  - Sneezing [Unknown]
  - Nasopharyngitis [Unknown]
  - Cough [Unknown]
  - Cardiac disorder [Unknown]
  - Increased appetite [Unknown]
  - Weight decreased [Unknown]
  - Heart rate abnormal [Unknown]
  - Affect lability [Unknown]
  - Malaise [Unknown]
  - Sleep disorder [Unknown]
  - Productive cough [Unknown]
  - Retching [Unknown]
  - Vision blurred [Unknown]
  - Visual impairment [Unknown]
  - Haemorrhoids [Unknown]
  - Fatigue [Unknown]
